FAERS Safety Report 15082374 (Version 1)
Quarter: 2018Q2

REPORT INFORMATION
  Report Type: Spontaneous
  Country: US (occurrence: US)
  Receive Date: 20180628
  Receipt Date: 20180628
  Transmission Date: 20180711
  Serious: No
  Sender: FDA-Public Use
  Company Number: US-MYLANLABS-2018M1045820

PATIENT
  Age: 62 Year
  Sex: Female

DRUGS (2)
  1. MINIVELLE [Concomitant]
     Active Substance: ESTRADIOL
     Indication: HORMONE REPLACEMENT THERAPY
     Dosage: 0.75 MG, UNK
     Dates: start: 201801
  2. ESTRADIOL. [Suspect]
     Active Substance: ESTRADIOL
     Indication: HORMONE REPLACEMENT THERAPY
     Dosage: UNK, BIWEEKLY

REACTIONS (4)
  - Anxiety [Unknown]
  - Influenza [Unknown]
  - Hot flush [Unknown]
  - Premenstrual syndrome [Unknown]
